FAERS Safety Report 15467166 (Version 1)
Quarter: 2018Q4

REPORT INFORMATION
  Report Type: Spontaneous
  Country: DE (occurrence: DE)
  Receive Date: 20181005
  Receipt Date: 20181005
  Transmission Date: 20190204
  Serious: Yes (Other)
  Sender: FDA-Public Use
  Company Number: DE-AUROBINDO-AUR-APL-2018-048511

PATIENT
  Age: 16 Year
  Sex: Female

DRUGS (2)
  1. KLEODINA [Interacting]
     Active Substance: ETHINYL ESTRADIOL\LEVONORGESTREL
     Indication: PRODUCT USED FOR UNKNOWN INDICATION
     Dosage: UNK,ETHINYLESTRADIOL 0.03 MG AND LEVONORGESTREL 0.125 MG
     Route: 065
  2. LAMOTRIGINE. [Suspect]
     Active Substance: LAMOTRIGINE
     Indication: EPILEPSY
     Dosage: UNK
     Route: 065

REACTIONS (2)
  - Labelled drug-drug interaction medication error [Unknown]
  - Epilepsy [Unknown]
